FAERS Safety Report 12196480 (Version 3)
Quarter: 2016Q2

REPORT INFORMATION
  Report Type: Spontaneous
  Country: US (occurrence: US)
  Receive Date: 20160321
  Receipt Date: 20160526
  Transmission Date: 20160815
  Serious: Yes (Other)
  Sender: FDA-Public Use
  Company Number: US-TEVA-643991USA

PATIENT
  Age: 43 Year
  Sex: Female

DRUGS (1)
  1. ZECUITY [Suspect]
     Active Substance: SUMATRIPTAN SUCCINATE
     Indication: MIGRAINE
     Route: 062
     Dates: start: 20160311, end: 20160311

REACTIONS (9)
  - Sunburn [Unknown]
  - Application site pain [Unknown]
  - Drug administration error [Unknown]
  - Drug effect incomplete [Unknown]
  - Application site pruritus [Unknown]
  - Chemical injury [Recovered/Resolved]
  - Application site warmth [Unknown]
  - Application site erythema [Unknown]
  - Application site pain [Unknown]

NARRATIVE: CASE EVENT DATE: 20160311
